FAERS Safety Report 9501533 (Version 1)
Quarter: 2013Q1

REPORT INFORMATION
  Report Type: Spontaneous
  Country: US (occurrence: None)
  Receive Date: 20130107
  Receipt Date: 20130107
  Transmission Date: 20140127
  Serious: Yes (Other)
  Sender: FDA-Public Use
  Company Number: PHEH2012US021304

PATIENT
  Age: 43 Year
  Sex: Female
  Weight: 89.8 kg

DRUGS (8)
  1. GILENYA (FINGOLIMOD) CAPSULE, 0.5MG [Suspect]
     Dosage: 1 DF, DAILY, ORAL
     Dates: start: 20110809, end: 20120329
  2. VITAMIN D (ERGOCALCIFEROL) [Concomitant]
  3. DIVALPROEX SODIUM (VALPROATE SEMISODIUM) [Concomitant]
  4. FLUDROCORTISONE ACETATE (FLUDROCORTISONE ACETATE) [Concomitant]
  5. OXYBUTYNIN (OXYBUTYNIN) [Concomitant]
  6. DOXYCYCLINE (DOXYCYCLINE) [Concomitant]
  7. PROVIGIL (MODAFINIL) [Concomitant]
  8. SERTRALINE HYDROCHLORIDE (SERTRALINE HYDROCHLORIDE) [Concomitant]

REACTIONS (1)
  - White blood cell count decreased [None]
